FAERS Safety Report 9605708 (Version 1)
Quarter: 2013Q4

REPORT INFORMATION
  Report Type: Spontaneous
  Country: ES (occurrence: ES)
  Receive Date: 20131008
  Receipt Date: 20131008
  Transmission Date: 20140711
  Serious: Yes (Other)
  Sender: FDA-Public Use
  Company Number: PHHY2013ES110272

PATIENT
  Age: 78 Year
  Sex: Female

DRUGS (2)
  1. ESIDREX [Suspect]
     Indication: HYPERTENSION
     Dosage: 25 MG, DAILY
     Route: 048
     Dates: start: 201307
  2. LOSARTAN+HYDROCHLOROTHIAZIDE SANDOZ [Interacting]
     Indication: HYPERTENSION
     Dosage: 1 DF, UNK (ALTER) (50 MG LOSA, 12.5 MG HYDR)
     Route: 048
     Dates: start: 201307

REACTIONS (3)
  - Muscle spasms [Unknown]
  - Hypokalaemia [Unknown]
  - Wrong drug administered [Unknown]
